FAERS Safety Report 8221617-2 (Version None)
Quarter: 2012Q1

REPORT INFORMATION
  Report Type: 
  Country: None (occurrence: None)
  Receive Date: 20120320
  Receipt Date: 20120305
  Transmission Date: 20120608
  Serious: Yes (Death, Life-Threatening)
  Sender: FDA-Public Use
  Company Number: DE-ARROW GEN-2012-03946

PATIENT
  Age: 70 Year
  Sex: Male

DRUGS (12)
  1. JONOSTERIL                         /00351401/ [Concomitant]
     Indication: PRODUCT USED FOR UNKNOWN INDICATION
     Dosage: 1000 ML, UNKNOWN
     Route: 042
     Dates: start: 20111121, end: 20111121
  2. IBUPROFEN [Suspect]
     Indication: PRODUCT USED FOR UNKNOWN INDICATION
     Dosage: 1200 MG, UNKNOWN
     Route: 048
     Dates: end: 20111121
  3. ACETYLSALICYLIC ACID SRT [Suspect]
     Indication: PRODUCT USED FOR UNKNOWN INDICATION
     Dosage: 40 MG, DAILY
     Route: 048
     Dates: start: 20111120, end: 20111120
  4. RISPERDAL [Suspect]
     Dosage: 1.5 MG, UNKNOWN
     Route: 048
     Dates: end: 20111117
  5. PANTOZOL                           /01263204/ [Concomitant]
     Indication: PRODUCT USED FOR UNKNOWN INDICATION
     Dosage: 20 MG, UNKNOWN
     Route: 048
     Dates: start: 20111118, end: 20111121
  6. MELPERON [Suspect]
     Indication: PRODUCT USED FOR UNKNOWN INDICATION
     Dosage: 50-100 MG / D
     Route: 048
     Dates: end: 20111117
  7. AMLODIPINE [Suspect]
     Indication: PRODUCT USED FOR UNKNOWN INDICATION
     Dosage: 5 MG, UNKNOWN
     Route: 048
     Dates: end: 20111121
  8. MIRTAZAPINE [Suspect]
     Indication: PRODUCT USED FOR UNKNOWN INDICATION
     Dosage: 30 MG, UNKNOWN
     Route: 048
     Dates: start: 20111118, end: 20111121
  9. METFORMIN HCL [Concomitant]
     Indication: PRODUCT USED FOR UNKNOWN INDICATION
     Dosage: 1000 MG, UNKNOWN
     Route: 048
     Dates: end: 20111121
  10. MIRTAZAPINE [Suspect]
     Dosage: 45 MG, UNKNOWN
     Route: 048
     Dates: end: 20111117
  11. TILIDINE [Suspect]
     Indication: PRODUCT USED FOR UNKNOWN INDICATION
     Dosage: 208 MG, UNKNOWN
     Route: 048
     Dates: end: 20111121
  12. RISPERDAL [Suspect]
     Indication: PRODUCT USED FOR UNKNOWN INDICATION
     Dosage: 2 MG, UNKNOWN
     Route: 048
     Dates: start: 20111118, end: 20111121

REACTIONS (2)
  - PNEUMONIA [None]
  - HALLUCINATION, VISUAL [None]
